FAERS Safety Report 6069120-2 (Version None)
Quarter: 2009Q1

REPORT INFORMATION
  Report Type: 
  Country: None (occurrence: None)
  Receive Date: 20090203
  Receipt Date: 20090123
  Transmission Date: 20090719
  Serious: Yes (Life-Threatening, Hospitalization, Other)
  Sender: FDA-Public Use
  Company Number: ADE2009-0431

PATIENT
  Age: 14 Year
  Sex: Female
  Weight: 40 kg

DRUGS (2)
  1. ATENOLOL [Suspect]
     Dosage: 50 MG - ORAL
     Route: 048
  2. METFORMIN HYDROCHLORIDE [Suspect]
     Dosage: 500 MG - ORAL
     Route: 048

REACTIONS (10)
  - BRADYCARDIA [None]
  - CONVULSION [None]
  - GLASGOW COMA SCALE ABNORMAL [None]
  - HYPOTENSION [None]
  - INTENTIONAL OVERDOSE [None]
  - LACTIC ACIDOSIS [None]
  - METABOLIC ACIDOSIS [None]
  - MULTIPLE DRUG OVERDOSE [None]
  - NO THERAPEUTIC RESPONSE [None]
  - SUICIDAL IDEATION [None]
